FAERS Safety Report 12583406 (Version 3)
Quarter: 2016Q3

REPORT INFORMATION
  Report Type: Spontaneous
  Country: PE (occurrence: PE)
  Receive Date: 20160722
  Receipt Date: 20160727
  Transmission Date: 20161109
  Serious: Yes (Other)
  Sender: FDA-Public Use
  Company Number: PE-PFIZER INC-2016349899

PATIENT
  Age: 76 Year
  Sex: Female

DRUGS (2)
  1. LYRICA [Suspect]
     Active Substance: PREGABALIN
     Dosage: 150 MG, 2X/DAY
  2. LYRICA [Suspect]
     Active Substance: PREGABALIN
     Dosage: 150 MG, 1X/DAY (2 TABLETS OF 75 MG AT NIGHT)

REACTIONS (9)
  - Diabetes mellitus [Unknown]
  - Blood glucose increased [Unknown]
  - Influenza [Unknown]
  - Somnolence [Unknown]
  - Dizziness [Recovered/Resolved]
  - Pain [Unknown]
  - Drug ineffective [Unknown]
  - Pain in extremity [Not Recovered/Not Resolved]
  - Neuropathy peripheral [Unknown]
